FAERS Safety Report 8195677-1 (Version None)
Quarter: 2012Q1

REPORT INFORMATION
  Report Type: 
  Country: None (occurrence: None)
  Receive Date: 20120308
  Receipt Date: 20120227
  Transmission Date: 20120608
  Serious: Yes (Hospitalization, Other)
  Sender: FDA-Public Use
  Company Number: DE-ELI_LILLY_AND_COMPANY-DE201202007828

PATIENT
  Age: 38 Year
  Sex: Female

DRUGS (5)
  1. CYMBALTA [Suspect]
  2. HYDROCORTISONE [Concomitant]
  3. METFORMIN HYDROCHLORIDE [Concomitant]
  4. CALCIUM CARBONATE [Concomitant]
  5. MIRTAZAPINE [Concomitant]

REACTIONS (7)
  - MYDRIASIS [None]
  - SUICIDE ATTEMPT [None]
  - TREMOR [None]
  - TACHYCARDIA [None]
  - BLOOD GLUCOSE INCREASED [None]
  - ATAXIA [None]
  - INTENTIONAL OVERDOSE [None]
